FAERS Safety Report 13166248 (Version 1)
Quarter: 2017Q1

REPORT INFORMATION
  Report Type: Spontaneous
  Country: SE (occurrence: SE)
  Receive Date: 20170131
  Receipt Date: 20170131
  Transmission Date: 20170428
  Serious: Yes (Other)
  Sender: FDA-Public Use
  Company Number: SE-SHIRE-SE201701395

PATIENT
  Age: 29 Year
  Sex: Female

DRUGS (3)
  1. AMFETAMINE [Concomitant]
     Active Substance: AMPHETAMINE
     Indication: ATTENTION DEFICIT/HYPERACTIVITY DISORDER
     Dosage: UNK, UNKNOWN (EVEN HAS AFTERNOON DOSE)
     Route: 065
  2. ELVANSE [Suspect]
     Active Substance: LISDEXAMFETAMINE DIMESYLATE
     Dosage: UNK UNK, UNKNOWN
     Route: 048
     Dates: start: 2013
  3. ELVANSE [Suspect]
     Active Substance: LISDEXAMFETAMINE DIMESYLATE
     Indication: ATTENTION DEFICIT/HYPERACTIVITY DISORDER
     Dosage: 70 MG, 1X/DAY:QD
     Route: 048

REACTIONS (6)
  - Personality change [Unknown]
  - Folliculitis [Unknown]
  - Paranoia [Unknown]
  - Impulsive behaviour [Unknown]
  - Acne [Unknown]
  - Aggression [Unknown]

NARRATIVE: CASE EVENT DATE: 2015
